FAERS Safety Report 14565288 (Version 1)
Quarter: 2018Q1

REPORT INFORMATION
  Report Type: Spontaneous
  Country: RU (occurrence: RU)
  Receive Date: 20180223
  Receipt Date: 20180223
  Transmission Date: 20180509
  Serious: Yes (Life-Threatening)
  Sender: FDA-Public Use
  Company Number: RU-BAYER-2018-030358

PATIENT
  Age: 86 Year
  Sex: Male

DRUGS (7)
  1. MOXIFLOXACIN ORAL [Suspect]
     Active Substance: MOXIFLOXACIN
     Indication: LUNG INFECTION
     Dosage: 400 MG, QD
  2. RIFABUTIN. [Suspect]
     Active Substance: RIFABUTIN
     Dosage: 150 MG, QD
  3. OXYGEN. [Concomitant]
     Active Substance: OXYGEN
     Dosage: UNK
  4. CILASTATIN [Concomitant]
     Active Substance: CILASTATIN
     Dosage: UNK
  5. CLARITHROMYCIN. [Concomitant]
     Active Substance: CLARITHROMYCIN
     Dosage: DAILY DOSE 500 MG
  6. TIOTROPIUM BROMIDE [Concomitant]
     Active Substance: TIOTROPIUM BROMIDE
     Dosage: UNK
  7. IMIPENEM [Concomitant]
     Active Substance: IMIPENEM
     Dosage: UNK

REACTIONS (2)
  - Chest pain [None]
  - Atrioventricular block complete [None]
